FAERS Safety Report 9330670 (Version 1)
Quarter: 2013Q2

REPORT INFORMATION
  Report Type: Spontaneous
  Country: FR (occurrence: FR)
  Receive Date: 20130605
  Receipt Date: 20130605
  Transmission Date: 20140414
  Serious: Yes (Life-Threatening, Hospitalization, Disabling)
  Sender: FDA-Public Use
  Company Number: FR-ROCHE-1230086

PATIENT
  Age: 64 Year
  Sex: Male

DRUGS (16)
  1. MABTHERA [Suspect]
     Indication: KIDNEY TRANSPLANT REJECTION
     Route: 042
     Dates: start: 20110113, end: 20110113
  2. CELLCEPT [Suspect]
     Indication: PROPHYLAXIS AGAINST TRANSPLANT REJECTION
     Route: 048
     Dates: start: 20071022, end: 20130419
  3. PROGRAF [Suspect]
     Indication: PROPHYLAXIS AGAINST TRANSPLANT REJECTION
     Route: 048
     Dates: start: 20071022, end: 20130419
  4. CORTANCYL [Concomitant]
     Indication: PROPHYLAXIS AGAINST TRANSPLANT REJECTION
     Route: 048
  5. HUMAN IMMUNOGLOBULIN [Concomitant]
     Indication: KIDNEY TRANSPLANT REJECTION
     Route: 041
  6. TEMERIT [Concomitant]
     Route: 065
  7. NORSET [Concomitant]
     Route: 065
  8. TAHOR [Concomitant]
     Route: 065
  9. PLAVIX [Concomitant]
     Route: 065
  10. MOPRAL (FRANCE) [Concomitant]
     Route: 065
  11. HUMALOG MIX 50/50 [Concomitant]
     Route: 065
  12. MAGNE B6 (FRANCE) [Concomitant]
     Route: 065
  13. BACTRIM [Concomitant]
     Dosage: 1/DAY
     Route: 065
  14. FOLINORAL [Concomitant]
     Dosage: 3/DAY
     Route: 065
  15. ROVALCYTE [Concomitant]
     Dosage: 450 MF/DAY
     Route: 065
  16. ARANESP [Concomitant]
     Route: 065

REACTIONS (1)
  - Progressive multifocal leukoencephalopathy [Not Recovered/Not Resolved]
